FAERS Safety Report 13386156 (Version 2)
Quarter: 2017Q2

REPORT INFORMATION
  Report Type: Spontaneous
  Country: US (occurrence: US)
  Receive Date: 20170330
  Receipt Date: 20170517
  Transmission Date: 20170830
  Serious: Yes (Other)
  Sender: FDA-Public Use
  Company Number: US-BAYER-2017-060406

PATIENT
  Age: 31 Year
  Sex: Female
  Weight: 91.61 kg

DRUGS (6)
  1. FOLIC ACID. [Concomitant]
     Active Substance: FOLIC ACID
     Route: 048
  2. CLONAZEPAM. [Concomitant]
     Active Substance: CLONAZEPAM
     Dosage: 0.5 MG, UNK
  3. CYTOTEC [Concomitant]
     Active Substance: MISOPROSTOL
     Dosage: UNK UNK, QD
  4. MIRENA [Suspect]
     Active Substance: LEVONORGESTREL
     Indication: CONTRACEPTION
     Dosage: 20 MCG/24HR, CONT
     Route: 015
     Dates: start: 20150415, end: 201705
  5. MIRENA [Suspect]
     Active Substance: LEVONORGESTREL
     Indication: MENORRHAGIA
  6. METROGEL [Concomitant]
     Active Substance: METRONIDAZOLE

REACTIONS (8)
  - Device dislocation [Not Recovered/Not Resolved]
  - Vaginal discharge [None]
  - Perineal pain [None]
  - Vaginal odour [None]
  - Menorrhagia [None]
  - Genital haemorrhage [Not Recovered/Not Resolved]
  - Pelvic pain [Not Recovered/Not Resolved]
  - Metrorrhagia [None]

NARRATIVE: CASE EVENT DATE: 20170327
